FAERS Safety Report 7595379-6 (Version None)
Quarter: 2011Q2

REPORT INFORMATION
  Report Type: 
  Country: None (occurrence: None)
  Receive Date: 20110620
  Receipt Date: 20110422
  Transmission Date: 20111010
  Serious: Yes (Hospitalization)
  Sender: FDA-Public Use
  Company Number: UTC-006598

PATIENT
  Age: 50 Year
  Sex: Female
  Weight: 75 kg

DRUGS (6)
  1. TYVASO [Suspect]
     Indication: PULMONARY HYPERTENSION
     Dosage: 144 MCG (36 MCG, 4 IN 1 D), INHALATION
     Route: 055
     Dates: start: 20101207
  2. DIURETICS (DIURETICS) [Concomitant]
  3. REMODULIN [Suspect]
     Indication: PULMONARY HYPERTENSION
     Dosage: 41.76 UG/KG (0.029 UG/KG, 1 IN 1 MIN), INTRAVENOUS
     Route: 042
     Dates: start: 20060425
  4. ADCIRCA [Concomitant]
  5. TRACLEER [Concomitant]
  6. COUMADIN [Concomitant]

REACTIONS (1)
  - VIRAL INFECTION [None]
